FAERS Safety Report 9299340 (Version 1)
Quarter: 2013Q2

REPORT INFORMATION
  Report Type: Spontaneous
  Country: NL (occurrence: NL)
  Receive Date: 20130520
  Receipt Date: 20130520
  Transmission Date: 20140414
  Serious: Yes (Life-Threatening, Hospitalization, Other)
  Sender: FDA-Public Use
  Company Number: NL-PFIZER INC-2013151543

PATIENT
  Age: 38 Year
  Sex: Female
  Weight: 80 kg

DRUGS (5)
  1. ETHINYLESTRADIOL/LEVONORGESTREL [Suspect]
     Indication: CONTRACEPTION
     Dosage: 30/150 UG
     Dates: start: 1990, end: 20121012
  2. ETHINYLESTRADIOL/LEVONORGESTREL [Suspect]
     Indication: MENORRHAGIA
  3. LYRICA [Concomitant]
     Indication: NEURALGIA
     Dosage: 50 MG, 2X/DAY
     Dates: start: 201106
  4. BUPRENORPHINE [Concomitant]
     Dosage: 1 DF, WEEKLY
     Dates: start: 201109
  5. BACLOFEN [Concomitant]
     Dosage: 10 MG, 1X/DAY
     Dates: start: 2011

REACTIONS (3)
  - Pulmonary embolism [Recovering/Resolving]
  - Pulmonary infarction [Unknown]
  - Pneumonia [Unknown]
